FAERS Safety Report 8429685-X (Version None)
Quarter: 2012Q2

REPORT INFORMATION
  Report Type: 
  Country: None (occurrence: None)
  Receive Date: 20120612
  Receipt Date: 20120605
  Transmission Date: 20120825
  Serious: Yes (Other)
  Sender: FDA-Public Use
  Company Number: US-ASTRAZENECA-2011SE71234

PATIENT
  Age: 60 Year
  Sex: Female
  Weight: 93.4 kg

DRUGS (14)
  1. TRAMADOL HCL [Concomitant]
     Indication: SCIATICA
     Route: 048
  2. VITAMIN D [Concomitant]
     Indication: VITAMIN SUPPLEMENTATION
     Route: 048
  3. KLONAPIN [Concomitant]
     Indication: ANXIETY
     Route: 048
  4. CREAM GM CR CMPD [Concomitant]
     Indication: OESTROGEN THERAPY
     Route: 061
  5. SEROQUEL XR [Suspect]
     Indication: BIPOLAR DISORDER
     Route: 048
     Dates: start: 20060101
  6. SEROQUEL XR [Suspect]
     Route: 048
  7. CRESTOR [Suspect]
     Indication: HYPERCHOLESTEROLAEMIA
     Route: 048
  8. CYMBALTA [Concomitant]
     Indication: ANTIDEPRESSANT THERAPY
     Route: 048
  9. THYROID TAB [Concomitant]
     Indication: THYROID DISORDER
     Route: 048
  10. SEROQUEL XR [Suspect]
     Route: 048
  11. NATURAL HORMONE COMPOUNDED OF PROGESTERONE AND ESTROGEN [Concomitant]
     Indication: HORMONE REPLACEMENT THERAPY
     Route: 048
  12. METFORMIN [Concomitant]
     Indication: DIABETES MELLITUS
     Route: 048
  13. KLONAPIN [Concomitant]
     Indication: INSOMNIA
     Route: 048
  14. ACYCLOVIR [Concomitant]
     Indication: GENITAL HERPES
     Route: 048

REACTIONS (12)
  - HOT FLUSH [None]
  - DRUG DOSE OMISSION [None]
  - UPPER LIMB FRACTURE [None]
  - BACK INJURY [None]
  - HYPERHIDROSIS [None]
  - DRUG INEFFECTIVE [None]
  - JOINT SWELLING [None]
  - MALAISE [None]
  - MENTAL DISORDER [None]
  - THERAPEUTIC RESPONSE UNEXPECTED [None]
  - GAIT DISTURBANCE [None]
  - FALL [None]
